FAERS Safety Report 9478209 (Version 1)
Quarter: 2013Q3

REPORT INFORMATION
  Report Type: Spontaneous
  Country: US (occurrence: US)
  Receive Date: 20130827
  Receipt Date: 20130827
  Transmission Date: 20140515
  Serious: Yes (Hospitalization)
  Sender: FDA-Public Use
  Company Number: US-PFIZER INC-2013247187

PATIENT
  Age: 54 Year
  Sex: Female
  Weight: 62.13 kg

DRUGS (4)
  1. CHANTIX [Suspect]
     Indication: SMOKING CESSATION THERAPY
     Dosage: 1 MG, 2X/DAY
     Dates: start: 2013, end: 20130808
  2. OXYCONTIN [Concomitant]
     Indication: BACK PAIN
     Dosage: 5 MG, AS NEEDED
  3. VALIUM [Concomitant]
     Indication: ANXIETY
     Dosage: 5 MG, AS NEEDED
  4. CARDIZEM [Concomitant]
     Indication: ATRIAL FIBRILLATION
     Dosage: 120 MG, 2X/DAY

REACTIONS (3)
  - Intervertebral disc disorder [Unknown]
  - Blood potassium decreased [Unknown]
  - Vomiting [Unknown]
